FAERS Safety Report 22302502 (Version 1)
Quarter: 2023Q2

REPORT INFORMATION
  Report Type: Spontaneous
  Country: IT (occurrence: IT)
  Receive Date: 20230510
  Receipt Date: 20230510
  Transmission Date: 20230722
  Serious: Yes (Other)
  Sender: FDA-Public Use
  Company Number: IT-EMA-DD-20230426-225465-113300

PATIENT
  Age: 72 Year
  Sex: Male

DRUGS (8)
  1. CYCLOPHOSPHAMIDE [Suspect]
     Active Substance: CYCLOPHOSPHAMIDE
     Indication: Plasma cell myeloma
     Dosage: 300 MILLIGRAM, ONCE WEEKLY
     Route: 048
  2. PREDNISONE [Suspect]
     Active Substance: PREDNISONE
     Indication: Plasma cell myeloma
     Dosage: 25 MG/DIE
     Route: 065
  3. LENALIDOMIDE [Concomitant]
     Active Substance: LENALIDOMIDE
     Indication: Plasma cell myeloma
     Dosage: 5 MG DAYS 1-21 IN 28-DAYS CYCLE
     Route: 065
     Dates: start: 201911
  4. METHYLPREDNISOLONE [Concomitant]
     Active Substance: METHYLPREDNISOLONE
     Indication: Drug reaction with eosinophilia and systemic symptoms
     Dosage: REDUCED DOSE FOR COMORBIDITIES (50 MG/DIE FOR 0. MG/KG DAILY).
     Route: 048
  5. METHYLPREDNISOLONE [Concomitant]
     Active Substance: METHYLPREDNISOLONE
     Dosage: 37.5 MG/DIE (FOR 0.6 MG/KG)
     Route: 048
  6. METHYLPREDNISOLONE [Concomitant]
     Active Substance: METHYLPREDNISOLONE
     Dosage: 1 MG/KG/DIE WITH SLOW TAPER OVER 3-6 MONTHS
     Route: 048
  7. Immunoglobulin [Concomitant]
     Indication: Drug reaction with eosinophilia and systemic symptoms
     Dosage: 1 G/KG FOR 2 DAYS
     Route: 042
  8. Immunoglobulin [Concomitant]
     Dosage: 0.5 G/KG FOR FOUR CONSECUTIVE DAYS
     Route: 042

REACTIONS (2)
  - Melaena [Unknown]
  - Condition aggravated [Unknown]
